FAERS Safety Report 12788521 (Version 4)
Quarter: 2017Q3

REPORT INFORMATION
  Report Type: Report from Study
  Country: IT (occurrence: IT)
  Receive Date: 20160928
  Receipt Date: 20170914
  Transmission Date: 20171127
  Serious: Yes (Life-Threatening, Other)
  Sender: FDA-Public Use
  Company Number: IT-TEVA-695740ACC

PATIENT
  Age: 61 Year
  Sex: Female

DRUGS (11)
  1. DOXORUBICIN HYDROCHLORIDE. [Suspect]
     Active Substance: DOXORUBICIN HYDROCHLORIDE
     Dosage: CYCLE 6, DOSE 43
     Route: 042
     Dates: start: 20160909
  2. TRABECTEDIN [Suspect]
     Active Substance: TRABECTEDIN
     Route: 042
     Dates: start: 20160812
  3. DOXORUBICIN HYDROCHLORIDE. [Suspect]
     Active Substance: DOXORUBICIN HYDROCHLORIDE
     Dosage: 43 DOSES
     Route: 042
     Dates: start: 20160525
  4. TRABECTEDIN [Suspect]
     Active Substance: TRABECTEDIN
     Route: 042
     Dates: start: 20160525
  5. TRABECTEDIN [Suspect]
     Active Substance: TRABECTEDIN
     Indication: OVARIAN CANCER
     Dosage: 1.9 MG CYCLICAL
     Route: 042
     Dates: start: 20160422, end: 20160506
  6. TRABECTEDIN [Suspect]
     Active Substance: TRABECTEDIN
     Route: 042
     Dates: start: 20160707
  7. DOXORUBICIN HYDROCHLORIDE. [Suspect]
     Active Substance: DOXORUBICIN HYDROCHLORIDE
     Dosage: 43 DOSES
     Route: 042
     Dates: start: 20160616
  8. DOXORUBICIN HYDROCHLORIDE. [Suspect]
     Active Substance: DOXORUBICIN HYDROCHLORIDE
     Dosage: CYCLE 5, 43 DOSES
     Route: 042
     Dates: start: 20160707
  9. TRABECTEDIN [Suspect]
     Active Substance: TRABECTEDIN
     Route: 042
     Dates: start: 20160616
  10. TRABECTEDIN [Suspect]
     Active Substance: TRABECTEDIN
     Route: 042
     Dates: start: 20160909
  11. DOXORUBICIN HYDROCHLORIDE. [Suspect]
     Active Substance: DOXORUBICIN HYDROCHLORIDE
     Indication: OVARIAN CANCER
     Dosage: 4.3 MG CYCLICAL
     Route: 042
     Dates: start: 20160422, end: 20160506

REACTIONS (6)
  - Leukopenia [Recovered/Resolved]
  - Anaemia [Unknown]
  - Thrombocytopenia [Recovered/Resolved]
  - Fatigue [Unknown]
  - Neutropenia [Unknown]
  - Hypertransaminasaemia [Unknown]

NARRATIVE: CASE EVENT DATE: 20160506
